FAERS Safety Report 16528794 (Version 3)
Quarter: 2019Q3

REPORT INFORMATION
  Report Type: Spontaneous
  Country: US (occurrence: US)
  Receive Date: 20190703
  Receipt Date: 20190718
  Transmission Date: 20191004
  Serious: No
  Sender: FDA-Public Use
  Company Number: PHEH2019US027523

PATIENT
  Sex: Female

DRUGS (6)
  1. LAXATIVE [Concomitant]
     Active Substance: UNSPECIFIED INGREDIENT
     Indication: PRODUCT USED FOR UNKNOWN INDICATION
     Dosage: UNK
     Route: 065
  2. LENVATINIB [Suspect]
     Active Substance: LENVATINIB
     Indication: RENAL CANCER
     Dosage: 18 MG, QD
     Route: 048
  3. LENVATINIB [Suspect]
     Active Substance: LENVATINIB
     Dosage: 14 MG, QD
     Route: 048
  4. AFINITOR [Suspect]
     Active Substance: EVEROLIMUS
     Indication: RENAL CANCER
     Dosage: UNK
     Route: 065
  5. LENVATINIB [Suspect]
     Active Substance: LENVATINIB
     Dosage: 14 MG, QD
     Route: 048
  6. LASIX [Concomitant]
     Active Substance: FUROSEMIDE
     Indication: PRODUCT USED FOR UNKNOWN INDICATION
     Dosage: UNK
     Route: 065

REACTIONS (11)
  - Constipation [Recovered/Resolved]
  - Abdominal pain [Recovering/Resolving]
  - Fatigue [Recovering/Resolving]
  - Peripheral swelling [Not Recovered/Not Resolved]
  - Pruritus [Recovering/Resolving]
  - Swelling [Not Recovered/Not Resolved]
  - Flatulence [Not Recovered/Not Resolved]
  - Rash generalised [Not Recovered/Not Resolved]
  - Dehydration [Recovering/Resolving]
  - Asthenia [Recovering/Resolving]
  - Rash pruritic [Not Recovered/Not Resolved]
